FAERS Safety Report 7624690-5 (Version None)
Quarter: 2011Q3

REPORT INFORMATION
  Report Type: 
  Country: None (occurrence: None)
  Receive Date: 20110720
  Receipt Date: 20110713
  Transmission Date: 20111222
  Serious: Yes (Hospitalization)
  Sender: FDA-Public Use
  Company Number: FR-BAYER-2011-061987

PATIENT
  Age: 65 Year
  Sex: Male
  Weight: 103 kg

DRUGS (6)
  1. TIENAM [Concomitant]
     Indication: INFECTION
     Dosage: UNK
     Route: 042
     Dates: start: 20100916
  2. CLINDAMYCIN HCL [Concomitant]
     Indication: INFECTION
     Dosage: UNK
     Route: 042
     Dates: start: 20100316, end: 20100917
  3. BACTRIM [Concomitant]
     Indication: INFECTION
     Dosage: DAILY DOSE 6 DF
     Route: 042
     Dates: start: 20100820, end: 20100910
  4. CIPROFLOXACIN [Suspect]
     Dosage: DAILY DOSE 750 MG
     Route: 042
     Dates: start: 20100916, end: 20100917
  5. CEFTAZIDIME SODIUM [Concomitant]
     Indication: INFECTION
     Dosage: DAILY DOSE 6 G
     Route: 042
     Dates: start: 20100820, end: 20100910
  6. CIPROFLOXACIN [Suspect]
     Indication: INFECTION
     Dosage: DAILY DOSE 750 MG
     Route: 042
     Dates: start: 20100820, end: 20100910

REACTIONS (3)
  - TOXIC SKIN ERUPTION [None]
  - RASH [None]
  - PYREXIA [None]
